FAERS Safety Report 9459341 (Version 4)
Quarter: 2014Q1

REPORT INFORMATION
  Report Type: Report from Study
  Country: LB (occurrence: LB)
  Receive Date: 20130815
  Receipt Date: 20140324
  Transmission Date: 20141002
  Serious: Yes (Hospitalization)
  Sender: FDA-Public Use
  Company Number: LB-ROCHE-1261252

PATIENT
  Age: 62 Year
  Sex: Female

DRUGS (3)
  1. PEG-INTERFERON ALFA 2A [Suspect]
     Indication: HEPATITIS C
     Route: 058
     Dates: start: 20130430, end: 20130722
  2. RIBAVIRIN [Suspect]
     Indication: HEPATITIS C
     Route: 048
     Dates: start: 20130430, end: 20130722
  3. EPREX [Concomitant]
     Indication: ANAEMIA
     Route: 058
     Dates: start: 20130729, end: 20130812

REACTIONS (1)
  - Pancytopenia [Recovered/Resolved]
